FAERS Safety Report 7030621-1 (Version None)
Quarter: 2010Q4

REPORT INFORMATION
  Report Type: 
  Country: None (occurrence: None)
  Receive Date: 20101001
  Receipt Date: 20100920
  Transmission Date: 20110411
  Serious: Yes (Hospitalization)
  Sender: FDA-Public Use
  Company Number: 2010US000053

PATIENT
  Age: 29 Year
  Sex: Male
  Weight: 90.7194 kg

DRUGS (2)
  1. ENTEREG [Suspect]
     Indication: POSTOPERATIVE ILEUS
     Dosage: 12 MG;  ;PO
     Route: 048
     Dates: start: 20100827, end: 20100827
  2. OXYCONTIN [Concomitant]

REACTIONS (5)
  - ABDOMINAL PAIN [None]
  - CHILLS [None]
  - GASTROINTESTINAL STOMA COMPLICATION [None]
  - MUSCLE SPASMS [None]
  - RENAL FAILURE ACUTE [None]
